FAERS Safety Report 19416288 (Version 2)
Quarter: 2021Q3

REPORT INFORMATION
  Report Type: Spontaneous
  Country: FR (occurrence: FR)
  Receive Date: 20210614
  Receipt Date: 20210803
  Transmission Date: 20211014
  Serious: Yes (Hospitalization)
  Sender: FDA-Public Use
  Company Number: FR-PFIZER INC-2021633161

PATIENT
  Age: 84 Year
  Sex: Male
  Weight: 70 kg

DRUGS (7)
  1. TAFAMIDIS MEGLUMINE [Suspect]
     Active Substance: TAFAMIDIS MEGLUMINE
     Indication: CARDIAC AMYLOIDOSIS
     Dosage: 20 MG, 1X/DAY
     Route: 048
     Dates: start: 20201112
  2. FUROSEMIDE ARROW [Concomitant]
     Active Substance: FUROSEMIDE
  3. SERESTA [Concomitant]
     Active Substance: OXAZEPAM
  4. ATORVASTATINE ACCORD [Concomitant]
     Active Substance: ATORVASTATIN
     Dosage: UNK
  5. MIANSERINE ALMUS [Concomitant]
     Active Substance: MIANSERIN HYDROCHLORIDE
  6. PERINDOPRIL ACTAVIS [Concomitant]
     Active Substance: PERINDOPRIL
  7. COUMADINE [Concomitant]
     Active Substance: WARFARIN SODIUM

REACTIONS (1)
  - Embolic stroke [Recovered/Resolved]

NARRATIVE: CASE EVENT DATE: 20210311
